FAERS Safety Report 5246459-1 (Version None)
Quarter: 2007Q1

REPORT INFORMATION
  Report Type: 
  Country: None (occurrence: None)
  Receive Date: 20070216
  Receipt Date: 20070123
  Transmission Date: 20070707
  Serious: No
  Sender: FDA-Public Use
  Company Number: ENT 2007-0001

PATIENT
  Age: 70 Year
  Sex: Female

DRUGS (2)
  1. COMTAN [Suspect]
     Indication: PARKINSON'S DISEASE
     Dosage: 800 MG (200 MG, 4 IN 1 D) ORAL
     Route: 048
     Dates: start: 20060905
  2. SINEMET [Concomitant]

REACTIONS (1)
  - HALLUCINATION, VISUAL [None]
